FAERS Safety Report 9133451 (Version 1)
Quarter: 2013Q1

REPORT INFORMATION
  Report Type: Spontaneous
  Country: NO (occurrence: NO)
  Receive Date: 20130301
  Receipt Date: 20130301
  Transmission Date: 20140127
  Serious: Yes (Other)
  Sender: FDA-Public Use
  Company Number: NO-ASTRAZENECA-2013SE12287

PATIENT
  Sex: Female

DRUGS (6)
  1. VIMOVO [Suspect]
     Indication: INFLAMMATION
     Dosage: UNK
     Route: 048
     Dates: start: 20130213, end: 20130219
  2. XARELTO [Interacting]
     Indication: CEREBROVASCULAR ACCIDENT PROPHYLAXIS
     Route: 048
     Dates: start: 20130208, end: 20130219
  3. XARELTO [Interacting]
     Indication: ATRIAL FIBRILLATION
     Route: 048
     Dates: start: 20130208, end: 20130219
  4. SELOZOK [Concomitant]
  5. LESCOL [Concomitant]
  6. TRIOBE [Concomitant]

REACTIONS (2)
  - Drug interaction [Unknown]
  - Rectal haemorrhage [Recovering/Resolving]
